FAERS Safety Report 6461943-0 (Version None)
Quarter: 2009Q4

REPORT INFORMATION
  Report Type: 
  Country: None (occurrence: None)
  Receive Date: 20091130
  Receipt Date: 20091124
  Transmission Date: 20100525
  Serious: Yes (Death, Hospitalization)
  Sender: FDA-Public Use
  Company Number: JP-SANOFI-AVENTIS-A01200910923

PATIENT
  Age: 74 Year
  Sex: Male
  Weight: 53 kg

DRUGS (9)
  1. PLAVIX [Suspect]
     Indication: CEREBRAL INFARCTION
     Dosage: UNIT DOSE: 75 MG
     Route: 048
     Dates: start: 20090916, end: 20091023
  2. ONON [Suspect]
     Indication: EMPHYSEMA
     Route: 048
     Dates: end: 20091023
  3. LIPITOR [Concomitant]
     Indication: HYPERCHOLESTEROLAEMIA
     Route: 048
     Dates: end: 20091021
  4. BIO THREE [Concomitant]
     Indication: CONSTIPATION
     Dosage: DOSE:1 UNIT(S)
     Route: 048
     Dates: end: 20091021
  5. PIOGLITAZONE HYDROCHLORIDE [Concomitant]
     Indication: DIABETES MELLITUS
     Route: 048
     Dates: end: 20091021
  6. VOGLIBOSE [Concomitant]
     Indication: DIABETES MELLITUS
     Route: 048
     Dates: end: 20091021
  7. RISUMIC [Concomitant]
     Indication: ORTHOSTATIC HYPOTENSION
     Route: 048
     Dates: start: 20090907, end: 20091023
  8. AMARYL [Concomitant]
     Indication: DIABETES MELLITUS
     Dosage: 3 MG IN THE MORNING, AND 2 MG IN THE EVENING
     Route: 048
     Dates: end: 20091021
  9. SPIRIVA [Concomitant]
     Indication: EMPHYSEMA
     Dosage: DOSE:1 UNIT(S)
     Route: 055

REACTIONS (3)
  - CEREBRAL INFARCTION [None]
  - INTERSTITIAL LUNG DISEASE [None]
  - MYOCARDIAL INFARCTION [None]
